FAERS Safety Report 6336358-6 (Version None)
Quarter: 2009Q3

REPORT INFORMATION
  Report Type: 
  Country: None (occurrence: None)
  Receive Date: 20090901
  Receipt Date: 20090820
  Transmission Date: 20100115
  Serious: Yes (Death, Hospitalization)
  Sender: FDA-Public Use
  Company Number: IN-ELI_LILLY_AND_COMPANY-IN200908004325

PATIENT
  Sex: Female
  Weight: 40 kg

DRUGS (5)
  1. PEMETREXED [Suspect]
     Indication: HEAD AND NECK CANCER
     Dosage: 500 MG/M2, UNK
     Dates: start: 20090428
  2. CISPLATIN [Suspect]
     Indication: HEAD AND NECK CANCER
     Dosage: 75 MG/M2, ON DAY ONE EVERY 21 DAYS
     Dates: start: 20090428
  3. FOLIC ACID [Concomitant]
     Indication: SUPPLEMENTATION THERAPY
     Route: 048
     Dates: start: 20090422, end: 20090728
  4. VITAMIN B-12 [Concomitant]
     Indication: SUPPLEMENTATION THERAPY
     Dosage: 3RD AMP
     Route: 030
     Dates: start: 20090402, end: 20090624
  5. DEXAMETHASONE [Concomitant]
     Indication: SUPPLEMENTATION THERAPY
     Dosage: 4 MG, UNK
     Route: 048
     Dates: start: 20090427

REACTIONS (2)
  - DEATH [None]
  - DIARRHOEA [None]
